FAERS Safety Report 25472194 (Version 1)
Quarter: 2025Q2

REPORT INFORMATION
  Report Type: Report from Study
  Country: US (occurrence: US)
  Receive Date: 20250624
  Receipt Date: 20250624
  Transmission Date: 20250716
  Serious: No
  Sender: TAKEDA
  Company Number: US-TAKEDA-US202028624

PATIENT
  Age: 72 Year
  Sex: Female

DRUGS (3)
  1. HUMAN IMMUNOGLOBULIN G [Suspect]
     Active Substance: HUMAN IMMUNOGLOBULIN G
     Indication: Primary immunodeficiency syndrome
     Dosage: 20 GRAM, MONTHLY
  2. HYQVIA [Suspect]
     Active Substance: HUMAN IMMUNOGLOBULIN G\HYALURONIDASE (HUMAN RECOMBINANT)
     Indication: Primary immunodeficiency syndrome
     Dosage: 20 GRAM, MONTHLY
  3. HYQVIA [Suspect]
     Active Substance: HUMAN IMMUNOGLOBULIN G\HYALURONIDASE (HUMAN RECOMBINANT)
     Indication: Immunodeficiency common variable

REACTIONS (27)
  - Multiple allergies [Unknown]
  - Limb injury [Not Recovered/Not Resolved]
  - Abdominal distension [Unknown]
  - Stress [Unknown]
  - Alopecia [Unknown]
  - Epstein-Barr virus infection [Unknown]
  - Temperature intolerance [Unknown]
  - Humidity intolerance [Unknown]
  - Aphonia [Unknown]
  - Fall [Unknown]
  - Foot fracture [Unknown]
  - Skin laceration [Unknown]
  - Dermatitis contact [Unknown]
  - Arthralgia [Unknown]
  - Raynaud^s phenomenon [Unknown]
  - Gastrooesophageal reflux disease [Unknown]
  - Device infusion issue [Unknown]
  - Product packaging issue [Unknown]
  - Road traffic accident [Unknown]
  - Device leakage [Unknown]
  - Incorrect dose administered [Unknown]
  - Musculoskeletal stiffness [Unknown]
  - Infusion site pruritus [Unknown]
  - Tremor [Unknown]
  - Back pain [Unknown]
  - Infusion site pain [Unknown]
  - Fatigue [Unknown]

NARRATIVE: CASE EVENT DATE: 20200901
